FAERS Safety Report 4406798-0 (Version None)
Quarter: 2004Q3

REPORT INFORMATION
  Report Type: 
  Country: None (occurrence: None)
  Receive Date: 20040723
  Receipt Date: 20020516
  Transmission Date: 20050211
  Serious: Yes (Death, Other)
  Sender: FDA-Public Use
  Company Number: US-MERCK-0205USA02001

PATIENT
  Age: 45 Year
  Sex: Female

DRUGS (22)
  1. PERCOCET [Concomitant]
     Indication: PAIN
     Route: 048
  2. ELAVIL [Concomitant]
     Route: 048
  3. BACLOFEN [Concomitant]
     Route: 048
  4. DULCOLAX [Concomitant]
     Route: 065
  5. WELLBUTRIN [Concomitant]
     Route: 048
  6. TEGRETOL [Concomitant]
     Route: 048
  7. SOMA [Concomitant]
     Route: 048
  8. COLACE [Concomitant]
     Route: 048
  9. NEURONTIN [Concomitant]
     Route: 048
  10. VISTARIL [Concomitant]
     Indication: INSOMNIA
     Route: 048
  11. VISTARIL [Concomitant]
     Indication: NAUSEA
     Route: 048
  12. ATIVAN [Concomitant]
     Indication: ANXIETY
     Route: 048
  13. MAGNESIA [MILK OF] [Concomitant]
     Route: 065
  14. MEXILETINE HYDROCHLORIDE [Concomitant]
     Route: 048
  15. MS CONTIN [Concomitant]
     Route: 048
  16. COMPAZINE [Concomitant]
     Indication: NAUSEA
     Route: 065
  17. COMPAZINE [Concomitant]
     Indication: VOMITING
     Route: 065
  18. SEROQUEL [Concomitant]
     Route: 065
  19. SEROQUEL [Concomitant]
     Route: 048
  20. VIOXX [Suspect]
     Indication: PAIN
     Route: 048
     Dates: start: 20010101
  21. FLEET RECTAROID ENEMA [Concomitant]
     Route: 065
  22. COUMADIN [Concomitant]
     Route: 048

REACTIONS (8)
  - CAROTID ARTERY STENOSIS [None]
  - CEREBROVASCULAR ACCIDENT [None]
  - CERVICOBRACHIAL SYNDROME [None]
  - DEATH [None]
  - DEPRESSION [None]
  - INJURY [None]
  - OEDEMA [None]
  - POST PROCEDURAL COMPLICATION [None]
